FAERS Safety Report 11505469 (Version 1)
Quarter: 2015Q3

REPORT INFORMATION
  Report Type: Spontaneous
  Country: US (occurrence: US)
  Receive Date: 20150915
  Receipt Date: 20150915
  Transmission Date: 20151125
  Serious: No
  Sender: FDA-Public Use
  Company Number: US-ROCHE-754770

PATIENT
  Age: 31 Year
  Sex: Female
  Weight: 64 kg

DRUGS (7)
  1. RIBASPHERE RIBAPAK [Suspect]
     Active Substance: RIBAVIRIN
     Indication: HEPATITIS C
     Dosage: ONE 800 MG PILL IN AM AND ONE 600 MG PILL IN AM, FORM: PILL
     Route: 048
  2. PEGASYS [Suspect]
     Active Substance: PEGINTERFERON ALFA-2A
     Indication: HEPATITIS C
     Dosage: FORM: PFS
     Route: 058
     Dates: start: 20101213, end: 20110216
  3. RIBASPHERE RIBAPAK [Suspect]
     Active Substance: RIBAVIRIN
     Dosage: TAKEN IN DIVIDED DOSES
     Route: 048
  4. CONCERTA [Concomitant]
     Active Substance: METHYLPHENIDATE HYDROCHLORIDE
     Indication: DEPRESSION
     Route: 065
  5. PAXIL [Concomitant]
     Active Substance: PAROXETINE HYDROCHLORIDE
     Indication: DEPRESSION
     Route: 065
  6. RITALIN [Concomitant]
     Active Substance: METHYLPHENIDATE HYDROCHLORIDE
     Indication: DEPRESSION
     Route: 065
  7. RISPERDAL [Concomitant]
     Active Substance: RISPERIDONE
     Indication: DEPRESSION
     Route: 065

REACTIONS (33)
  - Drug dose omission [Unknown]
  - Tongue ulceration [Not Recovered/Not Resolved]
  - Cheilitis [Not Recovered/Not Resolved]
  - Fatigue [Unknown]
  - Oral candidiasis [Not Recovered/Not Resolved]
  - Glossodynia [Recovered/Resolved]
  - Gingival pain [Recovering/Resolving]
  - Pneumonia [Recovering/Resolving]
  - Neutrophil count decreased [Recovered/Resolved]
  - Lymphocyte count increased [Recovered/Resolved]
  - Platelet count decreased [Recovered/Resolved]
  - Blood urea nitrogen/creatinine ratio decreased [Recovered/Resolved]
  - Drug dose omission [Unknown]
  - Malaise [Unknown]
  - Dry skin [Recovering/Resolving]
  - Oral pain [Recovered/Resolved]
  - Pruritus [Recovering/Resolving]
  - Stomatitis [Recovering/Resolving]
  - Blood urea decreased [Recovered/Resolved]
  - Weight decreased [Unknown]
  - Alopecia [Not Recovered/Not Resolved]
  - Transaminases abnormal [Recovered/Resolved]
  - White blood cell count decreased [Recovered/Resolved]
  - Urobilinogen urine increased [Unknown]
  - Nasopharyngitis [Unknown]
  - Dehydration [Recovering/Resolving]
  - Asthenia [Recovering/Resolving]
  - Dermatitis [Recovering/Resolving]
  - Rash pruritic [Not Recovered/Not Resolved]
  - Paraesthesia oral [Not Recovered/Not Resolved]
  - Influenza like illness [Unknown]
  - Rash [Recovered/Resolved]
  - Myalgia [Recovering/Resolving]

NARRATIVE: CASE EVENT DATE: 20101213
